FAERS Safety Report 4659360-9 (Version None)
Quarter: 2005Q2

REPORT INFORMATION
  Report Type: 
  Country: None (occurrence: None)
  Receive Date: 20050510
  Receipt Date: 20050426
  Transmission Date: 20051028
  Serious: Yes (Hospitalization)
  Sender: FDA-Public Use
  Company Number: MK200504-0331-1

PATIENT
  Age: 77 Year
  Sex: Female

DRUGS (2)
  1. ANAFRANIL CAP [Suspect]
     Indication: DEPRESSION
     Dosage: 75 MG, PO
     Route: 048
  2. AMOXAPINE [Concomitant]

REACTIONS (14)
  - AMIMIA [None]
  - ANOREXIA [None]
  - ASTHENIA [None]
  - CONDITION AGGRAVATED [None]
  - DEPRESSION [None]
  - DRUG INEFFECTIVE [None]
  - EXPRESSIVE LANGUAGE DISORDER [None]
  - EXTRAPYRAMIDAL DISORDER [None]
  - FALL [None]
  - HEADACHE [None]
  - HEPATIC FUNCTION ABNORMAL [None]
  - INSOMNIA [None]
  - LUMBAR VERTEBRAL FRACTURE [None]
  - THERAPEUTIC RESPONSE DECREASED [None]
